FAERS Safety Report 7042599-5 (Version None)
Quarter: 2010Q3

REPORT INFORMATION
  Report Type: 
  Country: None (occurrence: None)
  Receive Date: 20100929
  Receipt Date: 20100814
  Transmission Date: 20110219
  Serious: No
  Sender: FDA-Public Use
  Company Number: US-WYE-H16923810

PATIENT
  Age: 67 Year
  Sex: Female
  Weight: 62.65 kg

DRUGS (3)
  1. PRISTIQ [Suspect]
     Indication: ANXIETY
     Dosage: 50 MG 1X PER 1 DAY, ORAL
     Route: 048
     Dates: start: 20100811
  2. BUPROPION HCL [Suspect]
     Indication: ANXIETY
     Dosage: HALF A TABLET, ORAL; STARTED YEARS AGO AT 300 MG DAILY, ORAL
     Route: 048
     Dates: end: 20100801
  3. BUPROPION HCL [Suspect]
     Indication: ANXIETY
     Dosage: HALF A TABLET, ORAL; STARTED YEARS AGO AT 300 MG DAILY, ORAL
     Route: 048
     Dates: start: 20100801

REACTIONS (3)
  - NAUSEA [None]
  - VISION BLURRED [None]
  - VISUAL ACUITY REDUCED [None]
